FAERS Safety Report 6579666-6 (Version None)
Quarter: 2010Q1

REPORT INFORMATION
  Report Type: 
  Country: None (occurrence: None)
  Receive Date: 20100212
  Receipt Date: 20100203
  Transmission Date: 20100710
  Serious: Yes (Other)
  Sender: FDA-Public Use
  Company Number: US-ROCHE-669865

PATIENT
  Sex: Female

DRUGS (6)
  1. PEGASYS [Suspect]
     Indication: HEPATITIS C
     Dosage: PRE-FILLED SYRINGE, MISSED 1 INJECTION ON 24 NOV 2009
     Route: 058
     Dates: start: 20091117
  2. RIBAPAK [Suspect]
     Indication: HEPATITIS C
     Route: 048
     Dates: start: 20091117
  3. CLONOPIN [Concomitant]
  4. TOPAMAX [Concomitant]
     Indication: BIPOLAR DISORDER
     Route: 048
  5. VISTARIL [Concomitant]
     Indication: BIPOLAR DISORDER
  6. PREVACID [Concomitant]
     Route: 048

REACTIONS (12)
  - ARTHRALGIA [None]
  - ASTHENIA [None]
  - CATARACT [None]
  - CHILLS [None]
  - DIARRHOEA [None]
  - FATIGUE [None]
  - FEELING ABNORMAL [None]
  - HEADACHE [None]
  - HEPATIC PAIN [None]
  - HERPES ZOSTER OPHTHALMIC [None]
  - MYALGIA [None]
  - PYREXIA [None]
